FAERS Safety Report 23906268 (Version 1)
Quarter: 2024Q2

REPORT INFORMATION
  Report Type: Spontaneous
  Country: US (occurrence: US)
  Receive Date: 20240528
  Receipt Date: 20240528
  Transmission Date: 20240716
  Serious: Yes (Hospitalization)
  Sender: FDA-Public Use
  Company Number: US-STERISCIENCE B.V.-2023-ST-001461

PATIENT
  Age: 8 Day
  Sex: Female

DRUGS (6)
  1. AMPICILLIN [Suspect]
     Active Substance: AMPICILLIN
     Indication: Paronychia
     Dosage: 150 MILLIGRAM/KILOGRAM, QD
     Route: 042
  2. AMPICILLIN [Suspect]
     Active Substance: AMPICILLIN
     Indication: Staphylococcal infection
  3. AMPICILLIN [Suspect]
     Active Substance: AMPICILLIN
     Indication: Evidence based treatment
  4. GENTAMICIN [Suspect]
     Active Substance: GENTAMICIN
     Indication: Paronychia
     Dosage: 4 MILLIGRAM/KILOGRAM, QD
     Route: 065
  5. GENTAMICIN [Suspect]
     Active Substance: GENTAMICIN
     Indication: Staphylococcal infection
  6. GENTAMICIN [Suspect]
     Active Substance: GENTAMICIN
     Indication: Evidence based treatment

REACTIONS (1)
  - Drug ineffective [Unknown]
